FAERS Safety Report 4926015-2 (Version None)
Quarter: 2006Q1

REPORT INFORMATION
  Report Type: 
  Country: None (occurrence: None)
  Receive Date: 20060228
  Receipt Date: 20050727
  Transmission Date: 20060701
  Serious: No
  Sender: FDA-Public Use
  Company Number: US-GLAXOSMITHKLINE-A0567915A

PATIENT
  Age: 21 Year
  Sex: Female

DRUGS (3)
  1. LAMICTAL [Suspect]
     Indication: BIPOLAR DISORDER
     Dosage: 100MG PER DAY
     Route: 048
     Dates: start: 20050601, end: 20050725
  2. SEROQUEL [Concomitant]
  3. ORAL CONTRACEPTIVES [Concomitant]

REACTIONS (1)
  - HEAT RASH [None]
